FAERS Safety Report 13900666 (Version 1)
Quarter: 2017Q3

REPORT INFORMATION
  Report Type: Report from Study
  Country: None (occurrence: HU)
  Receive Date: 20170824
  Receipt Date: 20170824
  Transmission Date: 20171127
  Serious: Yes (Hospitalization)
  Sender: FDA-Public Use
  Company Number: HU-ABBVIE-17P-076-2075838-00

PATIENT
  Age: 43 Year
  Sex: Male

DRUGS (7)
  1. ADVAGRAF [Concomitant]
     Active Substance: TACROLIMUS
     Indication: RENAL TRANSPLANT
     Route: 048
     Dates: start: 2003
  2. CELLCEPT [Concomitant]
     Active Substance: MYCOPHENOLATE MOFETIL\MYCOPHENOLATE MOFETIL HYDROCHLORIDE
     Indication: RENAL TRANSPLANT
     Route: 048
     Dates: start: 2003
  3. VIEKIRAX [Suspect]
     Active Substance: OMBITASVIR\PARITAPREVIR\RITONAVIR
     Indication: HEPATITIS C
     Dosage: 12.5/75/50 MG
     Route: 048
     Dates: start: 20170502, end: 20170724
  4. RIBAVIRIN. [Concomitant]
     Active Substance: RIBAVIRIN
     Indication: HEPATITIS C
     Route: 048
     Dates: start: 20170502, end: 20170724
  5. VITAMIN B [Concomitant]
     Active Substance: VITAMIN B
     Indication: DIALYSIS
     Route: 048
  6. EXVIERA [Suspect]
     Active Substance: DASABUVIR
     Indication: HEPATITIS C
     Route: 048
     Dates: start: 20170502, end: 20170724
  7. FOLIC ACID. [Concomitant]
     Active Substance: FOLIC ACID
     Indication: DIALYSIS
     Route: 048

REACTIONS (4)
  - Fatigue [Not Recovered/Not Resolved]
  - Malaise [Not Recovered/Not Resolved]
  - Sepsis [Not Recovered/Not Resolved]
  - Pyonephrosis [Not Recovered/Not Resolved]

NARRATIVE: CASE EVENT DATE: 201707
